FAERS Safety Report 16298193 (Version 2)
Quarter: 2019Q2

REPORT INFORMATION
  Report Type: Report from Study
  Country: US (occurrence: US)
  Receive Date: 20190510
  Receipt Date: 20190611
  Transmission Date: 20190711
  Serious: Yes (Hospitalization)
  Sender: FDA-Public Use
  Company Number: US-GILEAD-2019-0403448

PATIENT
  Age: 17 Year
  Sex: Female

DRUGS (32)
  1. PROCARDIA [Concomitant]
     Active Substance: NIFEDIPINE
  2. ALBUTEROL [SALBUTAMOL] [Concomitant]
     Active Substance: ALBUTEROL
  3. ALENDRONATE [Concomitant]
     Active Substance: ALENDRONATE SODIUM
  4. CO Q 10 [UBIDECARENONE] [Concomitant]
  5. FOSAMAX [Concomitant]
     Active Substance: ALENDRONATE SODIUM
  6. TYLENOL [Concomitant]
     Active Substance: ACETAMINOPHEN
  7. BUDESONIDE. [Concomitant]
     Active Substance: BUDESONIDE
  8. CALCIUM [Concomitant]
     Active Substance: CALCIUM
  9. ALPHA LIPOIC ACID [Concomitant]
     Active Substance: .ALPHA.-LIPOIC ACID
  10. NORDITROPIN [Concomitant]
     Active Substance: SOMATROPIN
  11. SODIUM CHLORIDE. [Concomitant]
     Active Substance: SODIUM CHLORIDE
  12. ZANTAC [Concomitant]
     Active Substance: RANITIDINE HYDROCHLORIDE
  13. AZTREONAM LYSINE [Suspect]
     Active Substance: AZTREONAM LYSINE
     Indication: CYSTIC FIBROSIS
     Dosage: 75 MG, TID, 21 DAYS ON, 7 DAYS OFF
     Route: 055
     Dates: start: 20170511
  14. GAMMAGARD [Concomitant]
     Active Substance: HUMAN IMMUNOGLOBULIN G
  15. HYDROCHLOROTHIAZIDE. [Concomitant]
     Active Substance: HYDROCHLOROTHIAZIDE
  16. HYDROCORT [HYDROCORTISONE ACETATE] [Concomitant]
  17. MULTIVITAMIN [VITAMINS NOS] [Concomitant]
  18. PULMICORT TURBUHALER [Concomitant]
     Active Substance: BUDESONIDE
  19. ZYRTEC [Concomitant]
     Active Substance: CETIRIZINE HYDROCHLORIDE
  20. CYPROHEPTADINE. [Concomitant]
     Active Substance: CYPROHEPTADINE
  21. FLONASE [Concomitant]
     Active Substance: FLUTICASONE PROPIONATE
  22. NIFEDIPINE. [Concomitant]
     Active Substance: NIFEDIPINE
  23. PREDNISONE. [Concomitant]
     Active Substance: PREDNISONE
  24. PULMOZYME [Concomitant]
     Active Substance: DORNASE ALFA
  25. PRILOSEC [Concomitant]
     Active Substance: OMEPRAZOLE MAGNESIUM
  26. STELARA [Concomitant]
     Active Substance: USTEKINUMAB
  27. SWEEN [Concomitant]
  28. TOBRAMYCIN. [Concomitant]
     Active Substance: TOBRAMYCIN
  29. VITAMIN B [Concomitant]
     Active Substance: VITAMIN B
  30. CALCITROL [CALCITRIOL] [Concomitant]
  31. CARNITOR [Concomitant]
     Active Substance: LEVOCARNITINE
  32. METFORMIN [Concomitant]
     Active Substance: METFORMIN HYDROCHLORIDE

REACTIONS (5)
  - Secretion discharge [Not Recovered/Not Resolved]
  - Surgery [Not Recovered/Not Resolved]
  - Increased viscosity of bronchial secretion [Not Recovered/Not Resolved]
  - Sputum discoloured [Not Recovered/Not Resolved]
  - Intentional dose omission [Unknown]

NARRATIVE: CASE EVENT DATE: 201904
